FAERS Safety Report 23608414 (Version 4)
Quarter: 2024Q2

REPORT INFORMATION
  Report Type: Spontaneous
  Country: US (occurrence: US)
  Receive Date: 20240307
  Receipt Date: 20240508
  Transmission Date: 20240716
  Serious: Yes (Hospitalization)
  Sender: FDA-Public Use
  Company Number: US-JNJFOC-20240283808

PATIENT
  Age: 73 Year
  Sex: Female

DRUGS (40)
  1. XARELTO [Suspect]
     Active Substance: RIVAROXABAN
     Indication: Atrial fibrillation
     Route: 048
     Dates: start: 201909, end: 20240214
  2. XARELTO [Suspect]
     Active Substance: RIVAROXABAN
     Indication: Atrial flutter
  3. XARELTO [Suspect]
     Active Substance: RIVAROXABAN
     Indication: Cerebrovascular accident prophylaxis
  4. OXYTOCIN [Concomitant]
     Active Substance: OXYTOCIN
  5. FLECAINIDE ACETATE [Concomitant]
     Active Substance: FLECAINIDE ACETATE
     Indication: Atrial fibrillation
  6. METOLAZONE [Concomitant]
     Active Substance: METOLAZONE
  7. METHOCARBAMOL [Concomitant]
     Active Substance: METHOCARBAMOL
  8. PREVACID [Concomitant]
     Active Substance: LANSOPRAZOLE
  9. EVISTA [Concomitant]
     Active Substance: RALOXIFENE HYDROCHLORIDE
  10. LEVOTHYROXINE [Concomitant]
     Active Substance: LEVOTHYROXINE\LEVOTHYROXINE SODIUM
     Dosage: 225 MCG
  11. CRESTOR [Concomitant]
     Active Substance: ROSUVASTATIN CALCIUM
  12. CYANOCOBALAMIN [Concomitant]
     Active Substance: CYANOCOBALAMIN
  13. MORPHINE SULFATE [Concomitant]
     Active Substance: MORPHINE SULFATE
  14. FLUTICASONE PROPIONATE\SALMETEROL XINAFOATE [Concomitant]
     Active Substance: FLUTICASONE PROPIONATE\SALMETEROL XINAFOATE
     Dosage: 250/50 MCG
  15. ELAVIL [Concomitant]
     Active Substance: AMITRIPTYLINE HYDROCHLORIDE
  16. LYRICA [Concomitant]
     Active Substance: PREGABALIN
  17. ZYRTEC [Concomitant]
     Active Substance: CETIRIZINE HYDROCHLORIDE
  18. FLONASE [Concomitant]
     Active Substance: FLUTICASONE PROPIONATE
  19. IMITREX [Concomitant]
     Active Substance: SUMATRIPTAN SUCCINATE
  20. NYSTOP [Concomitant]
     Active Substance: NYSTATIN
  21. BETAMETHASONE DIPROPIONATE\CLOTRIMAZOLE [Concomitant]
     Active Substance: BETAMETHASONE DIPROPIONATE\CLOTRIMAZOLE
     Dosage: 1%/0.05%
  22. ERGOCALCIFEROL [Concomitant]
     Active Substance: ERGOCALCIFEROL
  23. VITRON C [ASCORBIC ACID;IRON PENTACARBONYL] [Concomitant]
     Dosage: 125MG/65MG
  24. TYLENOL [Concomitant]
     Active Substance: ACETAMINOPHEN
  25. BENADRYL [Concomitant]
     Active Substance: DIPHENHYDRAMINE HYDROCHLORIDE
  26. MUCINEX D [Concomitant]
     Active Substance: GUAIFENESIN\PSEUDOEPHEDRINE HYDROCHLORIDE
     Dosage: 600MG/60MG
  27. CRANBERRY [Concomitant]
     Active Substance: CRANBERRY
  28. COLACE [Concomitant]
     Active Substance: DOCUSATE SODIUM
  29. MELATONIN [Concomitant]
     Active Substance: MELATONIN
  30. CALCIUM\CHOLECALCIFEROL [Concomitant]
     Active Substance: CALCIUM\CHOLECALCIFEROL
  31. HYPROMELLOSE, UNSPECIFIED [Concomitant]
     Active Substance: HYPROMELLOSE, UNSPECIFIED
     Dosage: TWO DROPS EACH EYE
  32. METOPROLOL [Concomitant]
     Active Substance: METOPROLOL
  33. LASIX [Concomitant]
     Active Substance: FUROSEMIDE
  34. LASIX [Concomitant]
     Active Substance: FUROSEMIDE
  35. POTASSIUM CHLORIDE [Concomitant]
     Active Substance: POTASSIUM CHLORIDE
  36. SINGULAIR [Concomitant]
     Active Substance: MONTELUKAST SODIUM
  37. TUSSIN DM [Concomitant]
     Active Substance: DEXTROMETHORPHAN HYDROBROMIDE\GUAIFENESIN
  38. DRAMAMINE [Concomitant]
     Active Substance: DIMENHYDRINATE
  39. SIMETHICONE (DIMETHICONE) [Concomitant]
     Active Substance: DIMETHICONE
  40. OXYGEN [Concomitant]
     Active Substance: OXYGEN
     Dosage: CONTINUOUSLY VIA NASAL CANNULA

REACTIONS (3)
  - Subarachnoid haemorrhage [Unknown]
  - Spinal cord injury [Not Recovered/Not Resolved]
  - Paraplegia [Unknown]

NARRATIVE: CASE EVENT DATE: 20240211
